FAERS Safety Report 5927428-2 (Version None)
Quarter: 2008Q4

REPORT INFORMATION
  Report Type: 
  Country: None (occurrence: None)
  Receive Date: 20081022
  Receipt Date: 20081022
  Transmission Date: 20090506
  Serious: Yes (Other)
  Sender: FDA-Public Use
  Company Number: None

PATIENT
  Sex: Male
  Weight: 108.4097 kg

DRUGS (2)
  1. CIALIS [Suspect]
     Indication: ERECTILE DYSFUNCTION
     Dosage: 20 PRN PO
     Route: 048
     Dates: start: 20081004
  2. CIALIS [Suspect]
     Indication: ERECTILE DYSFUNCTION
     Dosage: 20 PRN PO
     Route: 048
     Dates: start: 20081015

REACTIONS (2)
  - DEAFNESS TRANSITORY [None]
  - DEAFNESS UNILATERAL [None]
